FAERS Safety Report 12658506 (Version 3)
Quarter: 2016Q3

REPORT INFORMATION
  Report Type: Report from Study
  Country: MX (occurrence: MX)
  Receive Date: 20160817
  Receipt Date: 20160901
  Transmission Date: 20161109
  Serious: Yes (Hospitalization, Disabling, Other)
  Sender: FDA-Public Use
  Company Number: PHHY2014MX163013

PATIENT
  Age: 64 Year
  Sex: Male
  Weight: 63 kg

DRUGS (11)
  1. AKATINOL [Concomitant]
     Indication: SENILE DEMENTIA
  2. ATACAND [Concomitant]
     Active Substance: CANDESARTAN CILEXETIL
     Indication: HYPERTENSION
     Dosage: 2 MG, UNK (MONDAY,WEDNESDAY AND FRIDAY 8 YEARS AGO)
     Route: 048
  3. EXELON PATCH [Suspect]
     Active Substance: RIVASTIGMINE
     Indication: CEREBROVASCULAR ACCIDENT
     Dosage: (PATCH 10 CM2), QD
     Route: 062
     Dates: start: 2012
  4. EXELON PATCH [Suspect]
     Active Substance: RIVASTIGMINE
     Dosage: 2 DF (2 PATCHES OF 5 CM2), QD
     Route: 062
     Dates: start: 20141204
  5. AKATINOL [Concomitant]
     Indication: CEREBRAL DISORDER
     Dosage: 20 MG, QD
     Route: 048
     Dates: start: 2012
  6. EXELON PATCH [Suspect]
     Active Substance: RIVASTIGMINE
     Indication: DEMENTIA ALZHEIMER^S TYPE
     Dosage: PATCH (5 CM2), QD
     Route: 062
     Dates: start: 201210
  7. EXELON PATCH [Suspect]
     Active Substance: RIVASTIGMINE
     Dosage: UNK
     Route: 062
     Dates: start: 201608
  8. VITAMIN E [Concomitant]
     Active Substance: .ALPHA.-TOCOPHEROL
     Indication: CEREBRAL DISORDER
     Dosage: 400 MG, QD (IN THE MORNING)
     Route: 065
     Dates: start: 20141204
  9. BENEXAFRINE [Concomitant]
     Indication: PRODUCT USED FOR UNKNOWN INDICATION
     Dosage: 5 MG, QHS
     Route: 065
  10. EXELON PATCH [Suspect]
     Active Substance: RIVASTIGMINE
     Dosage: PATCH (5 CM2), QD
     Route: 062
     Dates: end: 201505
  11. EXELON PATCH [Suspect]
     Active Substance: RIVASTIGMINE
     Dosage: UNK
     Route: 062
     Dates: end: 201601

REACTIONS (31)
  - Abasia [Not Recovered/Not Resolved]
  - Pneumonia [Unknown]
  - Peripheral swelling [Not Recovered/Not Resolved]
  - Pain in extremity [Not Recovered/Not Resolved]
  - Stubbornness [Unknown]
  - Muscular weakness [Not Recovered/Not Resolved]
  - Blood pressure increased [Unknown]
  - Drug prescribing error [Unknown]
  - Irritability [Not Recovered/Not Resolved]
  - Joint swelling [Unknown]
  - Drug ineffective [Unknown]
  - Incoherent [Not Recovered/Not Resolved]
  - Memory impairment [Not Recovered/Not Resolved]
  - Middle insomnia [Not Recovered/Not Resolved]
  - Dementia Alzheimer^s type [Unknown]
  - Confusional state [Not Recovered/Not Resolved]
  - Sputum retention [Unknown]
  - Somnolence [Not Recovered/Not Resolved]
  - Clumsiness [Not Recovered/Not Resolved]
  - Productive cough [Not Recovered/Not Resolved]
  - Insomnia [Not Recovered/Not Resolved]
  - Weight decreased [Not Recovered/Not Resolved]
  - Fall [Unknown]
  - Musculoskeletal chest pain [Not Recovered/Not Resolved]
  - Haemorrhage [Not Recovered/Not Resolved]
  - Depression [Not Recovered/Not Resolved]
  - Aggression [Not Recovered/Not Resolved]
  - General physical health deterioration [Not Recovered/Not Resolved]
  - Sedation [Not Recovered/Not Resolved]
  - Decreased interest [Unknown]
  - Product use issue [Not Recovered/Not Resolved]

NARRATIVE: CASE EVENT DATE: 201210
